FAERS Safety Report 24963818 (Version 1)
Quarter: 2025Q1

REPORT INFORMATION
  Report Type: Spontaneous
  Country: US (occurrence: US)
  Receive Date: 20250213
  Receipt Date: 20250213
  Transmission Date: 20250409
  Serious: Yes (Hospitalization)
  Sender: RECORDATI
  Company Number: US-ORPHANEU-2012000117

PATIENT

DRUGS (2)
  1. CARBAGLU [Suspect]
     Active Substance: CARGLUMIC ACID
     Indication: Hyperammonaemia
     Dosage: 200 MG, TID
     Route: 048
     Dates: start: 20110323
  2. CARBAGLU [Suspect]
     Active Substance: CARGLUMIC ACID
     Indication: Off label use

REACTIONS (4)
  - Pancreatitis [Unknown]
  - Hyperammonaemia [Unknown]
  - Vomiting [Unknown]
  - Off label use [Recovered/Resolved]
